FAERS Safety Report 13097738 (Version 1)
Quarter: 2017Q1

REPORT INFORMATION
  Report Type: Spontaneous
  Country: US (occurrence: US)
  Receive Date: 20170109
  Receipt Date: 20170109
  Transmission Date: 20170428
  Serious: No
  Sender: FDA-Public Use
  Company Number: US-PFM-2016-02082

PATIENT
  Age: 1 Year
  Sex: Female

DRUGS (1)
  1. HEMANGEOL [Suspect]
     Active Substance: PROPRANOLOL HYDROCHLORIDE
     Indication: HAEMANGIOMA
     Dosage: 3.2 ML, BID (2/DAY)
     Route: 048
     Dates: start: 20160502

REACTIONS (3)
  - Drug administered to patient of inappropriate age [Unknown]
  - Insomnia [Unknown]
  - Off label use [Unknown]
